FAERS Safety Report 8902687 (Version 1)
Quarter: 2012Q4

REPORT INFORMATION
  Report Type: 
  Country: US (occurrence: US)
  Receive Date: 20121112
  Receipt Date: 20121112
  Transmission Date: 20130627
  Serious: No
  Sender: FDA-Public Use
  Company Number: US-TEVA-368388USA

PATIENT
  Sex: Male

DRUGS (3)
  1. QNASL [Suspect]
     Indication: HYPERSENSITIVITY
     Dosage: 2 sprays
     Route: 045
     Dates: start: 201210
  2. QVAR [Concomitant]
  3. PRO-AIR [Concomitant]

REACTIONS (2)
  - Pain [Not Recovered/Not Resolved]
  - Burning sensation [Not Recovered/Not Resolved]
